FAERS Safety Report 9979407 (Version 1)
Quarter: 2014Q1

REPORT INFORMATION
  Report Type: Spontaneous
  Country: US (occurrence: US)
  Receive Date: 20140306
  Receipt Date: 20140306
  Transmission Date: 20141002
  Serious: No
  Sender: FDA-Public Use
  Company Number: US-ABBVIE-13P-163-1172185-00

PATIENT
  Age: 30 Year
  Sex: Male
  Weight: 83.99 kg

DRUGS (3)
  1. HUMIRA [Suspect]
     Indication: CROHN^S DISEASE
     Dosage: ONCE
     Dates: start: 20131014, end: 20131014
  2. HUMIRA [Suspect]
     Dosage: ONCE
     Dates: start: 20131028, end: 20131028
  3. HUMIRA [Suspect]
     Dosage: ONCE
     Dates: start: 20131111, end: 20131111

REACTIONS (2)
  - Incorrect dose administered [Recovered/Resolved]
  - Drug prescribing error [Unknown]
